FAERS Safety Report 8343171-7 (Version None)
Quarter: 2012Q2

REPORT INFORMATION
  Report Type: 
  Country: None (occurrence: None)
  Receive Date: 20120504
  Receipt Date: 20120504
  Transmission Date: 20120825
  Serious: Yes (Other)
  Sender: FDA-Public Use
  Company Number: None

PATIENT

DRUGS (3)
  1. LEVOXYL [Suspect]
  2. BENICAR HCT [Suspect]
     Indication: HYPERTENSION
     Dosage: BENICAR 40/12.5
     Dates: start: 20080425, end: 20120106
  3. SIMVASTATIN [Concomitant]

REACTIONS (7)
  - HEADACHE [None]
  - RENAL DISORDER [None]
  - VISUAL IMPAIRMENT [None]
  - FATIGUE [None]
  - DIARRHOEA [None]
  - BLOOD PRESSURE FLUCTUATION [None]
  - DYSPEPSIA [None]
